FAERS Safety Report 7766025-3 (Version None)
Quarter: 2011Q3

REPORT INFORMATION
  Report Type: 
  Country: None (occurrence: None)
  Receive Date: 20110921
  Receipt Date: 20110914
  Transmission Date: 20111222
  Serious: Yes (Other)
  Sender: FDA-Public Use
  Company Number: US-CELGENEUS-163-20785-11081909

PATIENT
  Age: 77 Year
  Sex: Male
  Weight: 76 kg

DRUGS (11)
  1. THALOMID [Suspect]
     Dosage: 100 MILLIGRAM
     Route: 048
     Dates: start: 20090729
  2. MELPHALAN HYDROCHLORIDE [Suspect]
     Dosage: 9 MILLIGRAM/SQ. METER
     Route: 048
     Dates: start: 20090729, end: 20100628
  3. ZOLEDRONIC ACID [Concomitant]
     Route: 041
  4. THALOMID [Suspect]
     Dosage: 100 MILLIGRAM
     Route: 048
     Dates: start: 20100701
  5. GLUCOSAMINE-CHONDROITIN [Concomitant]
     Dosage: 500-400MG
     Route: 048
  6. THALOMID [Suspect]
     Dosage: 100 MILLIGRAM
     Route: 048
     Dates: start: 20110424
  7. PREDNISONE [Suspect]
     Dosage: 100 MILLIGRAM
     Route: 048
     Dates: start: 20090729, end: 20100628
  8. TAMSULOSIN HCL [Concomitant]
     Dosage: .4 MILLIGRAM
     Route: 048
  9. FUROSEMIDE [Concomitant]
     Dosage: 20 MILLIGRAM
     Route: 048
  10. ASPIRIN [Concomitant]
     Dosage: 325 MILLIGRAM
     Route: 048
  11. PANTOPRAZOLE [Concomitant]
     Dosage: 40 MILLIGRAM
     Route: 048

REACTIONS (1)
  - SQUAMOUS CELL CARCINOMA OF SKIN [None]
